FAERS Safety Report 8167602 (Version 2)
Quarter: 2012Q4

REPORT INFORMATION
  Report Type: 
  Country: FR (occurrence: FR)
  Receive Date: 20111004
  Receipt Date: 20121018
  Transmission Date: 20130627
  Serious: No
  Sender: FDA-Public Use
  Company Number: PHHY2011FR85429

PATIENT
  Age: 27 Year
  Sex: Female
  Weight: 65 kg

DRUGS (2)
  1. AMN107 [Suspect]
     Indication: CHRONIC MYELOID LEUKAEMIA
     Dosage: 800 mg, daily
     Route: 048
     Dates: start: 20110201, end: 20110506
  2. MINIDRIL [Concomitant]

REACTIONS (3)
  - Exposure during pregnancy [Unknown]
  - Delivery [Unknown]
  - Normal newborn [Unknown]
